FAERS Safety Report 8851214 (Version 1)
Quarter: 2012Q4

REPORT INFORMATION
  Report Type: 
  Country: US (occurrence: US)
  Receive Date: 20121019
  Receipt Date: 20121019
  Transmission Date: 20130627
  Serious: No
  Sender: FDA-Public Use
  Company Number: US-BRISTOL-MYERS SQUIBB COMPANY-16899205

PATIENT
  Age: 92 Year
  Sex: Female
  Weight: 87 kg

DRUGS (1)
  1. YERVOY [Suspect]
     Indication: MALIGNANT MELANOMA
     Dosage: Past 8 pills a day
     Dates: start: 20120820

REACTIONS (6)
  - Pyrexia [Unknown]
  - Tremor [Unknown]
  - Erythema [Unknown]
  - Headache [Unknown]
  - Nausea [Unknown]
  - Thirst [Unknown]
